FAERS Safety Report 4895437-0 (Version None)
Quarter: 2006Q1

REPORT INFORMATION
  Report Type: 
  Country: None (occurrence: None)
  Receive Date: 20060130
  Receipt Date: 20050603
  Transmission Date: 20060701
  Serious: No
  Sender: FDA-Public Use
  Company Number: US-GLAXOSMITHKLINE-A0561149A

PATIENT
  Age: 59 Year
  Sex: Male

DRUGS (2)
  1. EPIVIR [Suspect]
     Indication: HIV INFECTION
     Route: 048
  2. SUSTIVA [Concomitant]

REACTIONS (2)
  - NAUSEA [None]
  - VOMITING [None]
